FAERS Safety Report 7785357-6 (Version None)
Quarter: 2011Q3

REPORT INFORMATION
  Report Type: 
  Country: None (occurrence: None)
  Receive Date: 20110929
  Receipt Date: 20110926
  Transmission Date: 20111222
  Serious: Yes (Other)
  Sender: FDA-Public Use
  Company Number: US-PFIZER INC-2011229135

PATIENT
  Sex: Female
  Weight: 58.957 kg

DRUGS (1)
  1. DETROL LA [Suspect]
     Indication: URINARY INCONTINENCE
     Dosage: 4 MG, DAILY
     Route: 048
     Dates: start: 20110915, end: 20110924

REACTIONS (1)
  - DYSURIA [None]
